FAERS Safety Report 4524057-2 (Version None)
Quarter: 2004Q4

REPORT INFORMATION
  Report Type: 
  Country: None (occurrence: None)
  Receive Date: 20041209
  Receipt Date: 20041202
  Transmission Date: 20050328
  Serious: Yes (Other)
  Sender: FDA-Public Use
  Company Number: THQ2004A01004

PATIENT
  Sex: Male

DRUGS (2)
  1. PROSTAP            (LEUPROLIDE ACETATE) [Suspect]
     Indication: PROSTATE CANCER
     Dates: start: 20041001
  2. CO-BENELDOPA (MADOPAR) [Concomitant]

REACTIONS (2)
  - CONDITION AGGRAVATED [None]
  - PARKINSON'S DISEASE [None]
